FAERS Safety Report 20503349 (Version 3)
Quarter: 2022Q2

REPORT INFORMATION
  Report Type: Report from Study
  Country: BR (occurrence: BR)
  Receive Date: 20220222
  Receipt Date: 20220407
  Transmission Date: 20220720
  Serious: Yes (Death, Other)
  Sender: FDA-Public Use
  Company Number: BR-NOVARTISPH-NVSC2022BR038672

PATIENT
  Age: 66 Year
  Sex: Male

DRUGS (1)
  1. VOTRIENT [Suspect]
     Active Substance: PAZOPANIB HYDROCHLORIDE
     Indication: Clear cell renal cell carcinoma
     Dosage: 400 MG
     Route: 065

REACTIONS (8)
  - Death [Fatal]
  - Clear cell renal cell carcinoma [Not Recovered/Not Resolved]
  - Malignant neoplasm progression [Not Recovered/Not Resolved]
  - Metastasis [Unknown]
  - Metastases to abdominal wall [Unknown]
  - Metastases to lung [Unknown]
  - Skin mass [Unknown]
  - Treatment failure [Unknown]

NARRATIVE: CASE EVENT DATE: 20200101
